FAERS Safety Report 8249313-6 (Version None)
Quarter: 2012Q1

REPORT INFORMATION
  Report Type: 
  Country: None (occurrence: None)
  Receive Date: 20120321
  Receipt Date: 20120307
  Transmission Date: 20120608
  Serious: No
  Sender: FDA-Public Use
  Company Number: US-145286

PATIENT

DRUGS (1)
  1. WINRHO SDF [Suspect]

REACTIONS (2)
  - HEADACHE [None]
  - URINE COLOUR ABNORMAL [None]
